FAERS Safety Report 8458706-3 (Version None)
Quarter: 2012Q2

REPORT INFORMATION
  Report Type: 
  Country: None (occurrence: None)
  Receive Date: 20120622
  Receipt Date: 20120618
  Transmission Date: 20120825
  Serious: Yes (Other)
  Sender: FDA-Public Use
  Company Number: US-PFIZER INC-2012019116

PATIENT
  Sex: Female

DRUGS (4)
  1. ADVAIR DISKUS 100/50 [Concomitant]
     Indication: INHALATION THERAPY
     Dosage: UNK
     Dates: start: 20060101, end: 20090101
  2. PREDNISONE [Concomitant]
     Dosage: UNK
     Dates: start: 20060101
  3. CHANTIX [Suspect]
     Indication: SMOKING CESSATION THERAPY
     Dosage: VARENICLINE STARTER PAK AND CONTINUING PAK WITH REFILLS
     Dates: start: 20080806, end: 20090101
  4. ALPRAZOLAM [Concomitant]
     Indication: ANXIETY
     Dosage: UNK
     Dates: start: 20060101

REACTIONS (4)
  - LIMB INJURY [None]
  - LOSS OF CONSCIOUSNESS [None]
  - AMNESIA [None]
  - NIGHTMARE [None]
